FAERS Safety Report 16195292 (Version 2)
Quarter: 2019Q2

REPORT INFORMATION
  Report Type: Report from Study
  Country: None (occurrence: US)
  Receive Date: 20190415
  Receipt Date: 20190520
  Transmission Date: 20190711
  Serious: No
  Sender: FDA-Public Use
  Company Number: US-ABBVIE-19K-163-2739640-00

PATIENT
  Age: 51 Year
  Sex: Female

DRUGS (1)
  1. HUMIRA [Suspect]
     Active Substance: ADALIMUMAB
     Indication: PSORIATIC ARTHROPATHY
     Route: 058

REACTIONS (5)
  - Complication associated with device [Unknown]
  - Joint swelling [Unknown]
  - Nodule [Unknown]
  - Skin discolouration [Unknown]
  - Arteritis [Unknown]

NARRATIVE: CASE EVENT DATE: 2019
